FAERS Safety Report 16196847 (Version 1)
Quarter: 2019Q2

REPORT INFORMATION
  Report Type: Spontaneous
  Country: US (occurrence: US)
  Receive Date: 20190311
  Receipt Date: 20190311
  Transmission Date: 20190711
  Serious: Yes (Life-Threatening, Hospitalization)
  Sender: FDA-Public Use
  Company Number: None

PATIENT
  Age: 71 Year
  Sex: Male
  Weight: 66.68 kg

DRUGS (2)
  1. SOTALOL. [Suspect]
     Active Substance: SOTALOL
     Indication: ATRIAL FIBRILLATION
     Route: 048
     Dates: start: 20111223, end: 20180522
  2. SOTALOL. [Suspect]
     Active Substance: SOTALOL
     Indication: CARDIAC FAILURE CONGESTIVE

REACTIONS (7)
  - Torsade de pointes [None]
  - Electrocardiogram QT prolonged [None]
  - Cardiac arrest [None]
  - Acute left ventricular failure [None]
  - Ventricular fibrillation [None]
  - Sinus bradycardia [None]
  - Sinus node dysfunction [None]

NARRATIVE: CASE EVENT DATE: 20180422
